FAERS Safety Report 9358394 (Version 1)
Quarter: 2013Q2

REPORT INFORMATION
  Report Type: Spontaneous
  Country: US (occurrence: None)
  Receive Date: 20130619
  Receipt Date: 20130619
  Transmission Date: 20140414
  Serious: Yes (Disabling)
  Sender: FDA-Public Use
  Company Number: None

PATIENT
  Age: 70 Year
  Sex: Male

DRUGS (1)
  1. LABETALOL [Suspect]
     Indication: CEREBROVASCULAR ACCIDENT
     Route: 042
     Dates: start: 20130331, end: 20130331

REACTIONS (5)
  - Aphasia [None]
  - Hyperhidrosis [None]
  - Disorientation [None]
  - Haemorrhagic transformation stroke [None]
  - Movement disorder [None]
